FAERS Safety Report 10005872 (Version 1)
Quarter: 2014Q1

REPORT INFORMATION
  Report Type: Spontaneous
  Country: US (occurrence: US)
  Receive Date: 20140313
  Receipt Date: 20140313
  Transmission Date: 20141002
  Serious: Yes (Hospitalization, Other)
  Sender: FDA-Public Use
  Company Number: US-BRISTOL-MYERS SQUIBB COMPANY-20349577

PATIENT
  Age: 85 Year
  Sex: Female
  Weight: 49.89 kg

DRUGS (1)
  1. ABATACEPT SUBQ INJECTION 125MG/ML [Suspect]
     Indication: RHEUMATOID ARTHRITIS
     Dosage: EXPIRATION DATE:  AUG2015?LATEST DOSE ON 20FEB2014
     Route: 058

REACTIONS (5)
  - Fall [Unknown]
  - Muscle injury [Unknown]
  - Nerve injury [Unknown]
  - Intervertebral disc disorder [Unknown]
  - Product quality issue [Unknown]
